FAERS Safety Report 9139499 (Version 1)
Quarter: 2013Q1

REPORT INFORMATION
  Report Type: Spontaneous
  Country: IT (occurrence: IT)
  Receive Date: 20130305
  Receipt Date: 20130305
  Transmission Date: 20140127
  Serious: Yes (Hospitalization)
  Sender: FDA-Public Use
  Company Number: IT-MYLANLABS-2013S1004169

PATIENT
  Age: 65 Year
  Sex: Female

DRUGS (3)
  1. PANTOPRAZOLE [Suspect]
     Indication: HIATUS HERNIA
     Route: 048
     Dates: start: 20130210, end: 20130210
  2. EUTIROX [Concomitant]
     Indication: HYPOTHYROIDISM
  3. KAFENAC [Concomitant]
     Indication: ARTHRALGIA

REACTIONS (2)
  - Dyspnoea [Recovering/Resolving]
  - Laryngeal oedema [Recovered/Resolved]
